FAERS Safety Report 5468907-4 (Version None)
Quarter: 2007Q3

REPORT INFORMATION
  Report Type: 
  Country: None (occurrence: None)
  Receive Date: 20070926
  Receipt Date: 20070920
  Transmission Date: 20080115
  Serious: Yes (Hospitalization)
  Sender: FDA-Public Use
  Company Number: JP-SHR-JP-2007-035387

PATIENT
  Age: 78 Year
  Sex: Female

DRUGS (13)
  1. FLUDARA [Suspect]
     Dosage: 40 MG, 1X/DAY
     Route: 048
     Dates: start: 20070801, end: 20070805
  2. BONALON [Concomitant]
  3. MUCOSTA [Concomitant]
  4. SIGMART [Concomitant]
  5. LANSOPRAZOLE [Concomitant]
  6. ALDACTONE [Concomitant]
  7. LASIX [Concomitant]
  8. MAGNESIUM OXIDE [Concomitant]
  9. ITRIZOLE [Concomitant]
  10. PRIMPERAN [Concomitant]
  11. OZEX [Concomitant]
  12. AMOBAN [Concomitant]
  13. SERENACE [Concomitant]

REACTIONS (3)
  - DYSPHAGIA [None]
  - PARKINSON'S DISEASE [None]
  - RASH [None]
